FAERS Safety Report 9304031 (Version 1)
Quarter: 2013Q2

REPORT INFORMATION
  Report Type: Report from Study
  Country: ZA (occurrence: ZA)
  Receive Date: 20130522
  Receipt Date: 20130522
  Transmission Date: 20140414
  Serious: Yes (Other)
  Sender: FDA-Public Use
  Company Number: PHHY2013ZA051257

PATIENT
  Age: 84 Year
  Sex: Female
  Weight: 55 kg

DRUGS (3)
  1. ACLASTA [Suspect]
     Indication: OSTEOPOROSIS
     Dosage: 5 MG, YEARLY
     Route: 042
     Dates: start: 2011
  2. ACLASTA [Suspect]
     Dosage: 5 MG, YEARLY
     Route: 042
     Dates: start: 2012
  3. IMODIUM [Concomitant]
     Dosage: UNK UKN, UNK

REACTIONS (5)
  - Fall [Unknown]
  - Spinal osteoarthritis [Unknown]
  - Spinal compression fracture [Unknown]
  - Dysstasia [Unknown]
  - Diarrhoea [Unknown]
